FAERS Safety Report 24295112 (Version 1)
Quarter: 2024Q3

REPORT INFORMATION
  Report Type: Spontaneous
  Country: FR (occurrence: FR)
  Receive Date: 20240907
  Receipt Date: 20240907
  Transmission Date: 20241017
  Serious: Yes (Hospitalization)
  Sender: AUROBINDO
  Company Number: FR-AFSSAPS-NC2024001013

PATIENT
  Age: 77 Year
  Sex: Male
  Weight: 92 kg

DRUGS (3)
  1. CEFTRIAXONE SODIUM [Suspect]
     Active Substance: CEFTRIAXONE SODIUM
     Indication: Localised infection
     Dosage: 3 GRAM, ONCE A DAY(1G X3  )
     Route: 042
     Dates: start: 20240730, end: 20240817
  2. GABAPENTIN [Suspect]
     Active Substance: GABAPENTIN
     Indication: Neuralgia
     Dosage: 3 GRAM, ONCE A DAY(1G X3)
     Route: 042
     Dates: start: 20240806, end: 20240820
  3. CLINDAMYCIN [Suspect]
     Active Substance: CLINDAMYCIN
     Indication: Localised infection
     Dosage: 2700 MILLIGRAM, ONCE A DAY(900MG X3 )
     Route: 048
     Dates: start: 20240717, end: 20240820

REACTIONS (2)
  - Rash [Recovering/Resolving]
  - Dermatitis diaper [Recovering/Resolving]

NARRATIVE: CASE EVENT DATE: 20240812
